FAERS Safety Report 7638997-9 (Version None)
Quarter: 2011Q3

REPORT INFORMATION
  Report Type: 
  Country: None (occurrence: None)
  Receive Date: 20110727
  Receipt Date: 20110720
  Transmission Date: 20111222
  Serious: Yes (Hospitalization, Other)
  Sender: FDA-Public Use
  Company Number: US-PFIZER INC-2011082232

PATIENT
  Sex: Male

DRUGS (6)
  1. CHANTIX [Suspect]
     Indication: SMOKING CESSATION THERAPY
     Dosage: 1 MG
     Route: 048
     Dates: start: 20081024, end: 20090901
  2. ATROVENT [Concomitant]
     Indication: CHRONIC OBSTRUCTIVE PULMONARY DISEASE
     Dosage: UNK
     Dates: start: 20070101, end: 20110101
  3. THIAMINE [Concomitant]
     Dosage: UNK
     Dates: start: 20060101
  4. CHANTIX [Suspect]
     Dosage: 1 MG
     Dates: start: 20091117, end: 20091230
  5. ADVAIR DISKUS 100/50 [Concomitant]
     Indication: CHRONIC OBSTRUCTIVE PULMONARY DISEASE
     Dosage: UNK
     Dates: start: 20070101, end: 20110101
  6. COZAAR [Concomitant]
     Indication: HYPERTENSION
     Dosage: UNK
     Dates: start: 20070101

REACTIONS (7)
  - ANXIETY [None]
  - SUICIDE ATTEMPT [None]
  - HALLUCINATIONS, MIXED [None]
  - AGGRESSION [None]
  - SUICIDAL IDEATION [None]
  - DEPRESSION [None]
  - PSYCHOTIC DISORDER [None]
